FAERS Safety Report 13164802 (Version 1)
Quarter: 2017Q1

REPORT INFORMATION
  Report Type: Spontaneous
  Country: DE (occurrence: DE)
  Receive Date: 20170130
  Receipt Date: 20170130
  Transmission Date: 20170428
  Serious: Yes (Disabling)
  Sender: FDA-Public Use
  Company Number: GXKR2017DE000841

PATIENT
  Age: 71 Year
  Sex: Male
  Weight: 69 kg

DRUGS (2)
  1. QUETIAPIN HEXAL [Suspect]
     Active Substance: QUETIAPINE FUMARATE
     Indication: RESTLESSNESS
  2. QUETIAPIN HEXAL [Suspect]
     Active Substance: QUETIAPINE FUMARATE
     Indication: SLEEP DISORDER
     Dosage: 50 MG, QID
     Route: 048
     Dates: start: 20170116, end: 20170118

REACTIONS (5)
  - Agitation [Recovering/Resolving]
  - Micturition urgency [Recovering/Resolving]
  - Erythema [Recovering/Resolving]
  - Dyspepsia [Recovering/Resolving]
  - Dry mouth [Recovering/Resolving]

NARRATIVE: CASE EVENT DATE: 20170116
